FAERS Safety Report 9380138 (Version 1)
Quarter: 2013Q3

REPORT INFORMATION
  Report Type: Spontaneous
  Country: US (occurrence: None)
  Receive Date: 20130701
  Receipt Date: 20130701
  Transmission Date: 20140515
  Serious: Yes (Life-Threatening, Other)
  Sender: FDA-Public Use
  Company Number: None

PATIENT
  Age: 63 Year
  Sex: Male
  Weight: 90.27 kg

DRUGS (1)
  1. ATIVAN [Suspect]
     Indication: SCAN BRAIN
     Dates: start: 20130626, end: 20130626

REACTIONS (4)
  - Delusion [None]
  - Confusional state [None]
  - Agitation [None]
  - Cognitive disorder [None]
